FAERS Safety Report 5840940-X (Version None)
Quarter: 2008Q3

REPORT INFORMATION
  Report Type: 
  Country: None (occurrence: None)
  Receive Date: 20080731
  Receipt Date: 20080520
  Transmission Date: 20090109
  Serious: Yes (Hospitalization)
  Sender: FDA-Public Use
  Company Number: US200805000751

PATIENT
  Age: 55 Year
  Sex: Female

DRUGS (3)
  1. BYETTA [Suspect]
     Dosage: 5 UG, SUBCUTANEOUS; 10 UG, 3/D, SUBCUTANEOUS
     Route: 058
     Dates: start: 20060912, end: 20061012
  2. BYETTA [Suspect]
     Dosage: 5 UG, SUBCUTANEOUS; 10 UG, 3/D, SUBCUTANEOUS
     Route: 058
     Dates: start: 20061012, end: 20070918
  3. EXENATIDE 10MCG PEN, DISPOSABLE DEVICE (EXENATIDE PEN (10MCG)) PEN,DIS [Concomitant]

REACTIONS (2)
  - ABDOMINAL PAIN [None]
  - EPIPLOIC APPENDAGITIS [None]
